FAERS Safety Report 4457280-6 (Version None)
Quarter: 2004Q3

REPORT INFORMATION
  Report Type: 
  Country: None (occurrence: None)
  Receive Date: 20040922
  Receipt Date: 20040911
  Transmission Date: 20050211
  Serious: Yes (Other)
  Sender: FDA-Public Use
  Company Number: 2004055671

PATIENT
  Age: 63 Year
  Sex: Male

DRUGS (3)
  1. CADUET [Suspect]
     Indication: BLOOD CHOLESTEROL INCREASED
     Dosage: ^5/10^ (1 IN 1 D),
  2. CADUET [Suspect]
     Indication: BLOOD PRESSURE INCREASED
     Dosage: ^5/10^ (1 IN 1 D),
  3. VALSARTAN (VALSARTAN) [Concomitant]

REACTIONS (1)
  - ANAPHYLACTIC REACTION [None]
